FAERS Safety Report 10062439 (Version 1)
Quarter: 2014Q2

REPORT INFORMATION
  Report Type: Report from Study
  Country: US (occurrence: US)
  Receive Date: 20140407
  Receipt Date: 20140407
  Transmission Date: 20141212
  Serious: Yes (Other)
  Sender: FDA-Public Use
  Company Number: US-ABBVIE-14P-163-1218891-00

PATIENT
  Sex: Male
  Weight: 97.61 kg

DRUGS (4)
  1. ANDROGEL [Suspect]
     Indication: BLOOD TESTOSTERONE DECREASED
     Route: 061
  2. ANDROGEL [Suspect]
     Indication: PITUITARY-DEPENDENT CUSHING^S SYNDROME
  3. PREDNISONE [Concomitant]
     Indication: ADDISON^S DISEASE
     Dates: start: 2014
  4. OTHER UNKNOWN MEDICATIONS [Concomitant]
     Indication: PRODUCT USED FOR UNKNOWN INDICATION

REACTIONS (5)
  - Addison^s disease [Not Recovered/Not Resolved]
  - Adrenalectomy [Recovered/Resolved]
  - Drug administered at inappropriate site [Not Recovered/Not Resolved]
  - Insomnia [Not Recovered/Not Resolved]
  - Fatigue [Not Recovered/Not Resolved]
